FAERS Safety Report 5892152-1 (Version None)
Quarter: 2008Q3

REPORT INFORMATION
  Report Type: 
  Country: None (occurrence: None)
  Receive Date: 20080908
  Receipt Date: 20080523
  Transmission Date: 20090109
  Serious: No
  Sender: FDA-Public Use
  Company Number: 002#2#2008-00474

PATIENT
  Age: 78 Year
  Sex: Male
  Weight: 77.1115 kg

DRUGS (4)
  1. NEUPRO [Suspect]
     Indication: PARKINSON'S DISEASE
     Dosage: 2MG/24H, 1 IN 1 D, TRANSDERMAL : 4MG/24H, 1  IN 1 D, TRANSDERMAL : 6MG/24H, 1 IN 1 D, TRANSDERMAL
     Route: 062
     Dates: end: 20080501
  2. NEUPRO [Suspect]
     Indication: PARKINSON'S DISEASE
     Dosage: 2MG/24H, 1 IN 1 D, TRANSDERMAL : 4MG/24H, 1  IN 1 D, TRANSDERMAL : 6MG/24H, 1 IN 1 D, TRANSDERMAL
     Route: 062
     Dates: start: 20071101
  3. NEUPRO [Suspect]
     Indication: PARKINSON'S DISEASE
     Dosage: 2MG/24H, 1 IN 1 D, TRANSDERMAL : 4MG/24H, 1  IN 1 D, TRANSDERMAL : 6MG/24H, 1 IN 1 D, TRANSDERMAL
     Route: 062
     Dates: start: 20071201
  4. SINEMET [Concomitant]

REACTIONS (2)
  - DRUG INEFFECTIVE [None]
  - PARKINSON'S DISEASE [None]
